FAERS Safety Report 7951681-7 (Version None)
Quarter: 2011Q4

REPORT INFORMATION
  Report Type: 
  Country: None (occurrence: None)
  Receive Date: 20111201
  Receipt Date: 20111122
  Transmission Date: 20120403
  Serious: Yes (Other)
  Sender: FDA-Public Use
  Company Number: DE-ROCHE-1016951

PATIENT
  Age: 72 Year
  Sex: Female

DRUGS (4)
  1. RANIBIZUMAB [Suspect]
     Indication: AGE-RELATED MACULAR DEGENERATION
     Route: 050
     Dates: start: 20110412
  2. RANIBIZUMAB [Suspect]
     Dates: start: 20110607
  3. SPERSACARPINE [Concomitant]
  4. RANIBIZUMAB [Suspect]
     Dates: start: 20110510

REACTIONS (4)
  - DRUG INEFFECTIVE [None]
  - ANGLE CLOSURE GLAUCOMA [None]
  - CATARACT [None]
  - VISUAL ACUITY REDUCED [None]
